FAERS Safety Report 10494296 (Version 1)
Quarter: 2014Q4

REPORT INFORMATION
  Report Type: Spontaneous
  Country: US (occurrence: None)
  Receive Date: 20141002
  Receipt Date: 20141002
  Transmission Date: 20150528
  Serious: Yes (Disabling)
  Sender: FDA-Public Use
  Company Number: None

PATIENT
  Age: 52 Year
  Sex: Male
  Weight: 79.38 kg

DRUGS (2)
  1. LEVOFLOXACIN. [Suspect]
     Active Substance: LEVOFLOXACIN
     Indication: SINUSITIS
     Dosage: 1 500MG PILL, ONCE DAILY, TAKEN BY MOUTH
     Route: 048
     Dates: start: 20140310, end: 20140531
  2. LEVOFLOXACIN. [Suspect]
     Active Substance: LEVOFLOXACIN
     Indication: PROSTATE INFECTION
     Dosage: 1 500MG PILL, ONCE DAILY, TAKEN BY MOUTH
     Route: 048
     Dates: start: 20140310, end: 20140531

REACTIONS (12)
  - Palpitations [None]
  - Hypoaesthesia [None]
  - Myalgia [None]
  - Neuralgia [None]
  - Mobility decreased [None]
  - Muscle spasms [None]
  - Paraesthesia [None]
  - Joint swelling [None]
  - Pain in extremity [None]
  - Peripheral swelling [None]
  - General physical health deterioration [None]
  - Quality of life decreased [None]

NARRATIVE: CASE EVENT DATE: 20141001
